FAERS Safety Report 9204525 (Version 1)
Quarter: 2013Q2

REPORT INFORMATION
  Report Type: Spontaneous
  Country: US (occurrence: None)
  Receive Date: 20130401
  Receipt Date: 20130401
  Transmission Date: 20140414
  Serious: No
  Sender: FDA-Public Use
  Company Number: None

PATIENT
  Age: 59 Year
  Sex: Male
  Weight: 50.1 kg

DRUGS (1)
  1. IODIXANOL [Suspect]
     Indication: IMAGING PROCEDURE
     Dosage: ONCE
     Dates: start: 20130107, end: 20130107

REACTIONS (2)
  - Anaphylactic reaction [None]
  - Documented hypersensitivity to administered drug [None]
